FAERS Safety Report 16646929 (Version 1)
Quarter: 2019Q3

REPORT INFORMATION
  Report Type: Spontaneous
  Country: FR (occurrence: FR)
  Receive Date: 20190730
  Receipt Date: 20190730
  Transmission Date: 20191004
  Serious: Yes (Hospitalization)
  Sender: FDA-Public Use
  Company Number: FR-ELI_LILLY_AND_COMPANY-FR201907010881

PATIENT
  Age: 78 Year
  Sex: Female
  Weight: 74.6 kg

DRUGS (7)
  1. VESICARE [Suspect]
     Active Substance: SOLIFENACIN SUCCINATE
     Indication: HYPERTONIC BLADDER
     Dosage: 1 DOSAGE FORM, DAILY
     Route: 048
     Dates: end: 20180723
  2. TERALITHE [Suspect]
     Active Substance: LITHIUM CARBONATE
     Indication: BIPOLAR DISORDER
     Dosage: 2.5 DOSAGE FORM, DAILY
     Route: 048
  3. MOGADON [Suspect]
     Active Substance: NITRAZEPAM
     Indication: BIPOLAR DISORDER
     Dosage: 1 DOSAGE FORM, DAILY
     Route: 048
     Dates: end: 20180723
  4. PROTHIADEN [Suspect]
     Active Substance: DOTHIEPIN HYDROCHLORIDE
     Indication: BIPOLAR DISORDER
     Dosage: 2 DOSAGE FORM, DAILY
     Route: 048
  5. OLANZAPINE. [Suspect]
     Active Substance: OLANZAPINE
     Indication: BIPOLAR DISORDER
     Dosage: 10 MG, DAILY
     Route: 048
  6. SERESTA [Suspect]
     Active Substance: OXAZEPAM
     Indication: BIPOLAR DISORDER
     Dosage: 1 DOSAGE FORM, DAILY
     Route: 048
  7. LEPTICUR [Suspect]
     Active Substance: TROPATEPINE HYDROCHLORIDE
     Indication: EXTRAPYRAMIDAL DISORDER
     Dosage: 1 DOSAGE FORM, DAILY
     Route: 048
     Dates: start: 20180713, end: 20180723

REACTIONS (1)
  - Fall [Recovered/Resolved]

NARRATIVE: CASE EVENT DATE: 201807
